FAERS Safety Report 20674671 (Version 1)
Quarter: 2022Q2

REPORT INFORMATION
  Report Type: Spontaneous
  Country: US (occurrence: US)
  Receive Date: 20220405
  Receipt Date: 20220405
  Transmission Date: 20220721
  Serious: No
  Sender: FDA-Public Use
  Company Number: US-GSKCCFUS-Case-01338516_AE-77729

PATIENT
  Age: 5 Year
  Sex: Female

DRUGS (1)
  1. FLOVENT HFA [Suspect]
     Active Substance: FLUTICASONE PROPIONATE
     Indication: Asthma
     Dosage: 2 PUFF(S), BID
     Route: 055

REACTIONS (3)
  - Illness [Not Recovered/Not Resolved]
  - Cough [Unknown]
  - Wrong technique in device usage process [Unknown]

NARRATIVE: CASE EVENT DATE: 20220401
